FAERS Safety Report 6882595-1 (Version None)
Quarter: 2010Q3

REPORT INFORMATION
  Report Type: 
  Country: None (occurrence: None)
  Receive Date: 20100729
  Receipt Date: 20100723
  Transmission Date: 20110219
  Serious: Yes (Death)
  Sender: FDA-Public Use
  Company Number: US-ROCHE-662132

PATIENT
  Sex: Male
  Weight: 103 kg

DRUGS (10)
  1. PEGINTERFERON ALFA-2A [Suspect]
     Indication: HEPATITIS C
     Dosage: LAST DOSE PRIOR TO SAE: 18 SEPT 2009
     Route: 058
     Dates: start: 20090608, end: 20090918
  2. RIBAVIRIN [Suspect]
     Indication: HEPATITIS C
     Dosage: LAST DOSE PRIOR TO SAE: 24 SEPT 2009
     Route: 048
     Dates: start: 20090608, end: 20090924
  3. GLYBURIDE [Suspect]
     Indication: PRODUCT USED FOR UNKNOWN INDICATION
     Dosage: FREQUENCY:  DAILY.
     Route: 065
     Dates: end: 20091004
  4. METFORMIN HCL [Suspect]
     Indication: PRODUCT USED FOR UNKNOWN INDICATION
     Dosage: FREQUENCY:  DAILY.
     Route: 065
     Dates: end: 20091004
  5. JANUVIA [Concomitant]
     Dosage: FREQUENCY:  DAILY.
     Dates: end: 20091004
  6. NORVASC [Concomitant]
     Dates: end: 20091004
  7. ALBUTEROL [Concomitant]
     Dosage: DRUG NAME REPORTED AS ALBUTEROL MDI. FREQUENCY EVERY FOUR HOUR IF NEEDED.
     Dates: end: 20091004
  8. LISINOPRIL [Concomitant]
     Dates: end: 20091004
  9. FLEXERIL [Concomitant]
     Dosage: FREQUENCY:  PRN (AS NEEDED).
     Dates: end: 20091004
  10. ALBUTEROL [Concomitant]
     Dosage: DRUG NAME REPORTED AS ALBUTEROL NEBULIZER.

REACTIONS (1)
  - DEATH [None]
